FAERS Safety Report 17833349 (Version 1)
Quarter: 2020Q2

REPORT INFORMATION
  Report Type: Spontaneous
  Country: US (occurrence: US)
  Receive Date: 20200527
  Receipt Date: 20200527
  Transmission Date: 20200714
  Serious: Yes (Hospitalization)
  Sender: FDA-Public Use
  Company Number: None

PATIENT
  Sex: Female

DRUGS (22)
  1. ENBREL [Suspect]
     Active Substance: ETANERCEPT
     Indication: RHEUMATOID ARTHRITIS
     Dosage: ?          OTHER FREQUENCY:Q7D;?
     Route: 058
     Dates: start: 20190913
  2. FOLIC ACID. [Concomitant]
     Active Substance: FOLIC ACID
  3. NABUMETONE. [Concomitant]
     Active Substance: NABUMETONE
  4. SULFASALAZINE DELAYED-RELEASE [Concomitant]
     Active Substance: SULFASALAZINE
  5. CLONIDINE. [Concomitant]
     Active Substance: CLONIDINE
  6. FLUCONAZOLE. [Concomitant]
     Active Substance: FLUCONAZOLE
  7. METHOTREXATE. [Concomitant]
     Active Substance: METHOTREXATE
  8. TRAZODONE [Concomitant]
     Active Substance: TRAZODONE HYDROCHLORIDE
  9. BENZONATATE. [Concomitant]
     Active Substance: BENZONATATE
  10. CEFDINIR. [Concomitant]
     Active Substance: CEFDINIR
  11. ESZOPICLONE. [Concomitant]
     Active Substance: ESZOPICLONE
  12. NAPROXEN DR [Concomitant]
     Active Substance: NAPROXEN
  13. PROCTOFOAM [Concomitant]
     Active Substance: PRAMOXINE HYDROCHLORIDE
  14. PREGABALIN. [Concomitant]
     Active Substance: PREGABALIN
  15. ALLOPURINOL. [Concomitant]
     Active Substance: ALLOPURINOL
  16. AMITRIPTLYN [Concomitant]
  17. DULOXETINE. [Concomitant]
     Active Substance: DULOXETINE
  18. GABAPENTIN. [Concomitant]
     Active Substance: GABAPENTIN
  19. METHYLPRED [Concomitant]
     Active Substance: METHYLPREDNISOLONE
  20. OSELTAMVIR [Concomitant]
     Active Substance: OSELTAMIVIR
  21. PREDNISONE. [Concomitant]
     Active Substance: PREDNISONE
  22. ZIPRASIDONE. [Concomitant]
     Active Substance: ZIPRASIDONE

REACTIONS (2)
  - Adverse drug reaction [None]
  - Therapy interrupted [None]
